FAERS Safety Report 23029477 (Version 1)
Quarter: 2023Q4

REPORT INFORMATION
  Report Type: Spontaneous
  Country: CN (occurrence: CN)
  Receive Date: 20231004
  Receipt Date: 20231004
  Transmission Date: 20240109
  Serious: Yes (Other)
  Sender: FDA-Public Use
  Company Number: CN-PFIZER INC-PV202300162506

PATIENT
  Age: 55 Year
  Sex: Male
  Weight: 62 kg

DRUGS (1)
  1. EPIRUBICIN HYDROCHLORIDE [Suspect]
     Active Substance: EPIRUBICIN HYDROCHLORIDE
     Indication: Neoplasm
     Dosage: 30 MG, 1X/DAY
     Route: 041
     Dates: start: 20230818, end: 20230818

REACTIONS (1)
  - Hepatic function abnormal [Recovering/Resolving]

NARRATIVE: CASE EVENT DATE: 20230820
